FAERS Safety Report 12471164 (Version 1)
Quarter: 2016Q2

REPORT INFORMATION
  Report Type: Spontaneous
  Country: US (occurrence: US)
  Receive Date: 20160616
  Receipt Date: 20160616
  Transmission Date: 20160815
  Serious: No
  Sender: FDA-Public Use
  Company Number: US-TAKEDA-2016TUS009729

PATIENT
  Age: 74 Year
  Sex: Male

DRUGS (6)
  1. UNKNOWN SLEEP AID [Concomitant]
     Indication: INSOMNIA
     Dosage: UNK
     Route: 065
  2. UNKNOWN DECONGESTANT [Concomitant]
     Indication: SINUS DISORDER
  3. NASONEX [Concomitant]
     Active Substance: MOMETASONE FUROATE
     Indication: HYPERSENSITIVITY
     Dosage: UNK
     Route: 065
  4. UNKNOWN DECONGESTANT [Concomitant]
     Indication: HYPERSENSITIVITY
     Dosage: UNK
     Route: 065
  5. ROZEREM [Suspect]
     Active Substance: RAMELTEON
     Indication: INSOMNIA
     Dosage: UNK, TID
     Route: 065
  6. NASONEX [Concomitant]
     Active Substance: MOMETASONE FUROATE
     Indication: SINUS DISORDER

REACTIONS (1)
  - Drug ineffective [Unknown]
